FAERS Safety Report 11982727 (Version 1)
Quarter: 2016Q1

REPORT INFORMATION
  Report Type: Spontaneous
  Country: VE (occurrence: None)
  Receive Date: 20160129
  Receipt Date: 20160129
  Transmission Date: 20160526
  Serious: Yes (Disabling)
  Sender: FDA-Public Use
  Company Number: None

PATIENT
  Age: 25 Year
  Sex: Female
  Weight: 60 kg

DRUGS (1)
  1. ORLISTAT REDICRES LETIFEM [Suspect]
     Active Substance: ORLISTAT
     Route: 048

REACTIONS (4)
  - Headache [None]
  - Malaise [None]
  - Diarrhoea [None]
  - Vomiting [None]

NARRATIVE: CASE EVENT DATE: 20160128
